FAERS Safety Report 8547478-X (Version None)
Quarter: 2012Q3

REPORT INFORMATION
  Report Type: 
  Country: None (occurrence: None)
  Receive Date: 20120727
  Receipt Date: 20120423
  Transmission Date: 20120928
  Serious: No
  Sender: FDA-Public Use
  Company Number: US-ASTRAZENECA-2012SE26458

PATIENT
  Age: 36 Year
  Sex: Female
  Weight: 83.9 kg

DRUGS (4)
  1. SEROQUEL XR [Suspect]
     Route: 048
  2. LAMICTAL [Concomitant]
     Indication: BIPOLAR DISORDER
  3. VIIBRYD [Concomitant]
     Indication: DEPRESSION
  4. SEROQUEL XR [Suspect]
     Indication: BIPOLAR II DISORDER
     Route: 048
     Dates: start: 20110101

REACTIONS (3)
  - INTENTIONAL DRUG MISUSE [None]
  - MUSCLE SPASMS [None]
  - SOMNOLENCE [None]
